FAERS Safety Report 16460922 (Version 3)
Quarter: 2019Q3

REPORT INFORMATION
  Report Type: Spontaneous
  Country: LT (occurrence: LT)
  Receive Date: 20190620
  Receipt Date: 20190705
  Transmission Date: 20191004
  Serious: Yes (Hospitalization, Other)
  Sender: FDA-Public Use
  Company Number: PHHY2019LT139147

PATIENT
  Age: 70 Year
  Sex: Female

DRUGS (3)
  1. CARBOPLATIN. [Suspect]
     Active Substance: CARBOPLATIN
     Indication: OVARIAN CANCER METASTATIC
     Dosage: UNK 8 CYCLES
     Route: 065
  2. CEFUROXIME. [Suspect]
     Active Substance: CEFUROXIME
     Indication: PNEUMONIA
     Route: 042
  3. PACLITAXEL. [Suspect]
     Active Substance: PACLITAXEL
     Indication: OVARIAN CANCER METASTATIC
     Dosage: UNK 8 CYCLES
     Route: 065

REACTIONS (17)
  - Tachycardia [Recovering/Resolving]
  - Anaemia [Recovering/Resolving]
  - Leukocytosis [Recovering/Resolving]
  - Product use in unapproved indication [Unknown]
  - Asthenia [Recovering/Resolving]
  - Venous thrombosis [Recovered/Resolved]
  - Sepsis [Recovering/Resolving]
  - Atrial thrombosis [Recovered/Resolved]
  - Pyrexia [Recovering/Resolving]
  - Pulmonary embolism [Recovered/Resolved]
  - Drug ineffective [Recovering/Resolving]
  - Pneumonia [Recovering/Resolving]
  - Thrombocytopenia [Recovered/Resolved]
  - Hyponatraemia [Recovering/Resolving]
  - Hypokalaemia [Recovering/Resolving]
  - Tongue dry [Recovering/Resolving]
  - C-reactive protein increased [Recovering/Resolving]
